FAERS Safety Report 7308518-9 (Version None)
Quarter: 2011Q1

REPORT INFORMATION
  Report Type: 
  Country: None (occurrence: None)
  Receive Date: 20110223
  Receipt Date: 20101221
  Transmission Date: 20110831
  Serious: Yes (Other)
  Sender: FDA-Public Use
  Company Number: US-BAYER-201024853NA

PATIENT
  Sex: Female

DRUGS (4)
  1. ALLEGRA [Concomitant]
  2. MULTIVITAMIN [Concomitant]
  3. DOSTINEX [Concomitant]
     Indication: PITUITARY TUMOUR BENIGN
  4. YASMIN [Suspect]
     Indication: PRODUCT USED FOR UNKNOWN INDICATION
     Route: 048
     Dates: start: 20051101

REACTIONS (8)
  - CEREBROVASCULAR ACCIDENT [None]
  - PERONEAL NERVE PALSY [None]
  - SPEECH DISORDER [None]
  - THROMBOSIS [None]
  - HEMIPLEGIA [None]
  - MUSCULAR WEAKNESS [None]
  - CEREBRAL INFARCTION [None]
  - INTRACRANIAL HYPOTENSION [None]
